FAERS Safety Report 4738645-1 (Version None)
Quarter: 2005Q3

REPORT INFORMATION
  Report Type: 
  Country: None (occurrence: None)
  Receive Date: 20050803
  Receipt Date: 20050711
  Transmission Date: 20060218
  Serious: Yes (Other)
  Sender: FDA-Public Use
  Company Number: EWC050644572

PATIENT
  Age: 64 Year
  Sex: Male

DRUGS (5)
  1. PERMAX [Suspect]
     Indication: PARKINSON'S DISEASE
     Dosage: 1 MG/3 DAY
     Dates: start: 19970805, end: 20041126
  2. ELDEPRYL [Concomitant]
  3. SINEMET [Concomitant]
  4. APURIN (ALLOPURINOL) [Concomitant]
  5. BERODUAL [Concomitant]

REACTIONS (7)
  - LYMPHADENOPATHY [None]
  - PLEURAL FIBROSIS [None]
  - PULMONARY ARTERIAL PRESSURE INCREASED [None]
  - PULMONARY FIBROSIS [None]
  - RESTRICTIVE PULMONARY DISEASE [None]
  - ROSAI-DORFMAN SYNDROME [None]
  - TRICUSPID VALVE INCOMPETENCE [None]
